FAERS Safety Report 10147248 (Version 3)
Quarter: 2015Q3

REPORT INFORMATION
  Report Type: Spontaneous
  Country: US (occurrence: US)
  Receive Date: 20140501
  Receipt Date: 20150817
  Transmission Date: 20151125
  Serious: No
  Sender: FDA-Public Use
  Company Number: US-GILEAD-2014-0101242

PATIENT
  Age: 74 Year
  Sex: Female

DRUGS (6)
  1. LETAIRIS [Suspect]
     Active Substance: AMBRISENTAN
     Indication: PULMONARY FIBROSIS
  2. LETAIRIS [Suspect]
     Active Substance: AMBRISENTAN
     Indication: PULMONARY HYPERTENSION
     Dosage: 5 MG, QD
     Route: 065
     Dates: start: 20140220
  3. REVATIO [Concomitant]
     Active Substance: SILDENAFIL CITRATE
  4. LETAIRIS [Suspect]
     Active Substance: AMBRISENTAN
     Indication: CHRONIC OBSTRUCTIVE PULMONARY DISEASE
  5. LETAIRIS [Suspect]
     Active Substance: AMBRISENTAN
     Indication: SLEEP APNOEA SYNDROME
  6. ADCIRCA [Concomitant]
     Active Substance: TADALAFIL

REACTIONS (3)
  - Unevaluable event [Unknown]
  - Peripheral swelling [Unknown]
  - Eye swelling [Unknown]
